FAERS Safety Report 10059970 (Version 1)
Quarter: 2014Q2

REPORT INFORMATION
  Report Type: Spontaneous
  Country: US (occurrence: US)
  Receive Date: 20140404
  Receipt Date: 20140404
  Transmission Date: 20141212
  Serious: No
  Sender: FDA-Public Use
  Company Number: US-GLAXOSMITHKLINE-A1049253A

PATIENT
  Age: 73 Year
  Sex: Female

DRUGS (4)
  1. ALLI [Suspect]
     Indication: WEIGHT DECREASED
     Dates: start: 201310
  2. CENTRUM SILVER [Suspect]
  3. UNKNOWN MEDICATION [Concomitant]
  4. UNKNOWN VITAMINS [Concomitant]

REACTIONS (3)
  - Drug interaction [Not Recovered/Not Resolved]
  - Onychoclasis [Not Recovered/Not Resolved]
  - Onychoclasis [Not Recovered/Not Resolved]
